FAERS Safety Report 8460258-9 (Version None)
Quarter: 2012Q2

REPORT INFORMATION
  Report Type: 
  Country: None (occurrence: None)
  Receive Date: 20120622
  Receipt Date: 20120612
  Transmission Date: 20120825
  Serious: Yes (Death, Hospitalization)
  Sender: FDA-Public Use
  Company Number: FR-SANOFI-AVENTIS-2012SA037314

PATIENT
  Age: 66 Year
  Sex: Male
  Weight: 73 kg

DRUGS (8)
  1. AMITRIPTYLINE HYDROCHLORIDE [Concomitant]
     Dates: start: 20110808
  2. TINZAPARIN SODIUM [Concomitant]
     Indication: PULMONARY EMBOLISM
     Dates: start: 20110817
  3. LIDOCAINE [Concomitant]
     Dates: start: 20110808
  4. BLINDED THERAPY [Suspect]
     Route: 042
     Dates: start: 20111018, end: 20111018
  5. DOCETAXEL [Suspect]
     Indication: NON-SMALL CELL LUNG CANCER STAGE IV
     Route: 042
     Dates: start: 20110726, end: 20110726
  6. DOCETAXEL [Suspect]
     Route: 042
     Dates: start: 20111018, end: 20111018
  7. BLINDED THERAPY [Suspect]
     Indication: NON-SMALL CELL LUNG CANCER STAGE IV
     Route: 042
     Dates: start: 20110726, end: 20110726
  8. NEURONTIN [Concomitant]
     Dates: start: 20100101

REACTIONS (2)
  - DEVICE RELATED INFECTION [None]
  - DEATH [None]
